FAERS Safety Report 17421264 (Version 1)
Quarter: 2020Q1

REPORT INFORMATION
  Report Type: Spontaneous
  Country: IT (occurrence: IT)
  Receive Date: 20200214
  Receipt Date: 20200214
  Transmission Date: 20200409
  Serious: Yes (Other)
  Sender: FDA-Public Use
  Company Number: IT-CELGENEUS-ITA-20200203866

PATIENT
  Age: 71 Year
  Sex: Male
  Weight: 80 kg

DRUGS (7)
  1. CETUXIMAB. [Concomitant]
     Active Substance: CETUXIMAB
     Indication: LARYNGEAL CANCER RECURRENT
     Route: 065
  2. DEXAMETHASONE. [Concomitant]
     Active Substance: DEXAMETHASONE
     Indication: PRODUCT USED FOR UNKNOWN INDICATION
     Route: 065
  3. ABRAXANE [Suspect]
     Active Substance: PACLITAXEL
     Indication: LARYNGEAL CANCER RECURRENT
     Route: 041
     Dates: start: 20191121
  4. PANTOPRAZOLE [Concomitant]
     Active Substance: PANTOPRAZOLE
     Indication: PRODUCT USED FOR UNKNOWN INDICATION
     Route: 065
  5. DOXYCYCLINE. [Concomitant]
     Active Substance: DOXYCYCLINE
     Indication: PRODUCT USED FOR UNKNOWN INDICATION
     Route: 065
  6. CISPLATINE [Concomitant]
     Active Substance: CISPLATIN
     Indication: LARYNGEAL CANCER RECURRENT
     Route: 042
     Dates: start: 20191121
  7. ERBITUX [Concomitant]
     Active Substance: CETUXIMAB
     Indication: LARYNGEAL CANCER RECURRENT
     Route: 042
     Dates: start: 20191121

REACTIONS (2)
  - Leukopenia [Recovering/Resolving]
  - Neutropenia [Recovering/Resolving]

NARRATIVE: CASE EVENT DATE: 20191231
